FAERS Safety Report 5492249-4 (Version None)
Quarter: 2007Q4

REPORT INFORMATION
  Report Type: 
  Country: None (occurrence: None)
  Receive Date: 20071022
  Receipt Date: 20071012
  Transmission Date: 20080405
  Serious: Yes (Hospitalization)
  Sender: FDA-Public Use
  Company Number: SE-ASTRAZENECA-2007SE05549

PATIENT
  Age: 66 Year
  Sex: Male

DRUGS (1)
  1. ZOMIG (PARANOVA) [Suspect]
     Indication: MIGRAINE
     Route: 048

REACTIONS (1)
  - CEREBRAL INFARCTION [None]
